FAERS Safety Report 13923265 (Version 2)
Quarter: 2017Q4

REPORT INFORMATION
  Report Type: Spontaneous
  Country: US (occurrence: US)
  Receive Date: 20170831
  Receipt Date: 20171031
  Transmission Date: 20180320
  Serious: No
  Sender: FDA-Public Use
  Company Number: US-ASTRAZENECA-2017SE88602

PATIENT
  Age: 1018 Month
  Sex: Female

DRUGS (2)
  1. SYMBICORT [Suspect]
     Active Substance: BUDESONIDE\FORMOTEROL FUMARATE DIHYDRATE
     Indication: EMPHYSEMA
     Dosage: 160/4.5UG,2 PUFFS IN THE MORNING AND 2 PUFFS AT NIGHT (TWICE DAILY)
     Route: 055
     Dates: start: 2014
  2. SYMBICORT [Suspect]
     Active Substance: BUDESONIDE\FORMOTEROL FUMARATE DIHYDRATE
     Indication: CHRONIC OBSTRUCTIVE PULMONARY DISEASE
     Dosage: 160/4.5UG,2 PUFFS IN THE MORNING AND 2 PUFFS AT NIGHT (TWICE DAILY)
     Route: 055
     Dates: start: 2014

REACTIONS (13)
  - Off label use of device [Unknown]
  - Dry mouth [Unknown]
  - Circumstance or information capable of leading to medication error [Unknown]
  - Intentional device misuse [Unknown]
  - Macular degeneration [Not Recovered/Not Resolved]
  - Memory impairment [Unknown]
  - Device malfunction [Unknown]
  - Productive cough [Unknown]
  - Oxygen saturation decreased [Unknown]
  - Device issue [Unknown]
  - Fatigue [Unknown]
  - Eye disorder [Unknown]
  - Vocal cord inflammation [Unknown]

NARRATIVE: CASE EVENT DATE: 201708
